FAERS Safety Report 8977552 (Version 1)
Quarter: 2012Q4

REPORT INFORMATION
  Report Type: 
  Country: PT (occurrence: PT)
  Receive Date: 20121219
  Receipt Date: 20121219
  Transmission Date: 20130627
  Serious: Yes (Other)
  Sender: FDA-Public Use
  Company Number: PT-JNJFOC-20121207967

PATIENT
  Age: 52 Year
  Sex: Male

DRUGS (5)
  1. INTELENCE [Suspect]
     Indication: HIV INFECTION
     Route: 065
  2. CIALIS [Concomitant]
     Route: 065
  3. FENOFIBRATE [Concomitant]
     Route: 065
  4. TRUVADA [Concomitant]
     Route: 065
  5. BLOPRESS [Concomitant]
     Route: 065

REACTIONS (1)
  - Erectile dysfunction [Unknown]
